FAERS Safety Report 6808125-8 (Version None)
Quarter: 2010Q2

REPORT INFORMATION
  Report Type: 
  Country: None (occurrence: None)
  Receive Date: 20100629
  Receipt Date: 20090210
  Transmission Date: 20101027
  Serious: No
  Sender: FDA-Public Use
  Company Number: US-PFIZER INC-2009164686

PATIENT
  Sex: Female
  Weight: 43.1 kg

DRUGS (1)
  1. ALPRAZOLAM [Suspect]
     Indication: ANXIETY
     Dosage: UNK
     Dates: start: 20081101

REACTIONS (2)
  - FATIGUE [None]
  - SOMNOLENCE [None]
